FAERS Safety Report 12199012 (Version 1)
Quarter: 2016Q1

REPORT INFORMATION
  Report Type: Spontaneous
  Country: US (occurrence: None)
  Receive Date: 20160321
  Receipt Date: 20160321
  Transmission Date: 20160526
  Serious: Yes (Other)
  Sender: FDA-Public Use
  Company Number: None

PATIENT
  Age: 28 Year
  Sex: Male
  Weight: 83.92 kg

DRUGS (1)
  1. SUBOXONE [Suspect]
     Active Substance: BUPRENORPHINE HYDROCHLORIDE\NALOXONE HYDROCHLORIDE
     Indication: DRUG DEPENDENCE
     Dosage: 1 FILM STRIP  THREE TIMES DAILLY TAKEN UNDER THE TONGUE
     Route: 060
     Dates: start: 20160317, end: 20160318

REACTIONS (4)
  - Glossodynia [None]
  - Swollen tongue [None]
  - Speech disorder [None]
  - Crying [None]

NARRATIVE: CASE EVENT DATE: 20160317
